FAERS Safety Report 5631499-0 (Version None)
Quarter: 2008Q1

REPORT INFORMATION
  Report Type: 
  Country: None (occurrence: None)
  Receive Date: 20080214
  Receipt Date: 20080204
  Transmission Date: 20080703
  Serious: Yes (Death)
  Sender: FDA-Public Use
  Company Number: 2008-01206

PATIENT
  Age: 39 Year
  Sex: Female

DRUGS (9)
  1. FIORICET [Suspect]
  2. FIORINAL [Suspect]
  3. IBUPROFEN [Suspect]
  4. NAPROXEN [Suspect]
  5. QUETIAPINE FUMARATE [Suspect]
  6. ANGIOTENSIN RECEPTOR BLOCKER() [Suspect]
  7. ESCITALOPRAM OXALATE [Suspect]
  8. CAFFEINE CITRATE [Suspect]
  9. FEXOFENADINE HCL [Suspect]

REACTIONS (1)
  - CARDIO-RESPIRATORY ARREST [None]
